FAERS Safety Report 16846565 (Version 1)
Quarter: 2019Q3

REPORT INFORMATION
  Report Type: Spontaneous
  Country: US (occurrence: US)
  Receive Date: 20190924
  Receipt Date: 20190924
  Transmission Date: 20191005
  Serious: Yes (Hospitalization)
  Sender: FDA-Public Use
  Company Number: US-UCBSA-2019039800

PATIENT
  Age: 2 Year
  Sex: Male

DRUGS (2)
  1. BRIVIACT [Suspect]
     Active Substance: BRIVARACETAM
     Indication: FOCAL DYSCOGNITIVE SEIZURES
     Dosage: 5.2 MILLILITER; FREQUENCY UNKNOWN; TAKES DAILY
  2. BRIVIACT [Suspect]
     Active Substance: BRIVARACETAM
     Indication: OFF LABEL USE

REACTIONS (3)
  - Hospitalisation [Unknown]
  - Product quality issue [Unknown]
  - Off label use [Unknown]

NARRATIVE: CASE EVENT DATE: 2019
